FAERS Safety Report 7483797-6 (Version None)
Quarter: 2011Q2

REPORT INFORMATION
  Report Type: 
  Country: None (occurrence: None)
  Receive Date: 20110517
  Receipt Date: 20110513
  Transmission Date: 20111010
  Serious: Yes (Death, Hospitalization, Other)
  Sender: FDA-Public Use
  Company Number: PHHY2010GB18926

PATIENT
  Sex: Male

DRUGS (1)
  1. CLOZARIL [Suspect]
     Indication: SCHIZOPHRENIA
     Dates: start: 20081210

REACTIONS (6)
  - DEATH [None]
  - DIABETES MELLITUS [None]
  - SCHIZOPHRENIA [None]
  - VICTIM OF CRIME [None]
  - DISEASE RECURRENCE [None]
  - STRESS [None]
